FAERS Safety Report 8303729-8 (Version None)
Quarter: 2012Q2

REPORT INFORMATION
  Report Type: 
  Country: None (occurrence: None)
  Receive Date: 20120423
  Receipt Date: 20120410
  Transmission Date: 20120825
  Serious: Yes (Hospitalization, Other)
  Sender: FDA-Public Use
  Company Number: US-SANOFI-AVENTIS-2012SA025155

PATIENT
  Age: 58 Year
  Sex: Female

DRUGS (7)
  1. PLAVIX [Suspect]
     Dates: start: 20060901
  2. ATORVASTATIN [Suspect]
     Indication: BLOOD CHOLESTEROL ABNORMAL
     Route: 048
     Dates: start: 20000101
  3. GABAPENTIN [Suspect]
     Route: 065
     Dates: start: 20060901
  4. LANTUS [Concomitant]
  5. GLIPIZIDE [Concomitant]
  6. GLYBURIDE [Concomitant]
  7. ALL OTHER THERAPEUTIC PRODUCTS [Suspect]
     Dates: start: 20060901

REACTIONS (2)
  - CEREBROVASCULAR ACCIDENT [None]
  - NERVE COMPRESSION [None]
